FAERS Safety Report 23392141 (Version 5)
Quarter: 2025Q3

REPORT INFORMATION
  Report Type: Spontaneous
  Country: US (occurrence: US)
  Receive Date: 20240111
  Receipt Date: 20250716
  Transmission Date: 20251021
  Serious: Yes (Other)
  Sender: PFIZER
  Company Number: US-PFIZER INC-PV202400003257

PATIENT
  Age: 71 Year
  Sex: Female

DRUGS (3)
  1. IBRANCE [Suspect]
     Active Substance: PALBOCICLIB
     Dates: end: 20240130
  2. IBRANCE [Suspect]
     Active Substance: PALBOCICLIB
  3. LETROZOLE [Suspect]
     Active Substance: LETROZOLE
     Indication: Hormone therapy

REACTIONS (4)
  - White blood cell count decreased [Recovering/Resolving]
  - Tooth abscess [Unknown]
  - Pruritus [Unknown]
  - Hot flush [Unknown]

NARRATIVE: CASE EVENT DATE: 20240101
